FAERS Safety Report 11515139 (Version 1)
Quarter: 2015Q3

REPORT INFORMATION
  Report Type: Report from Study
  Country: US (occurrence: US)
  Receive Date: 20150916
  Receipt Date: 20150916
  Transmission Date: 20151125
  Serious: Yes (Death)
  Sender: FDA-Public Use
  Company Number: PHEH2015US017805

PATIENT
  Age: 64 Year

DRUGS (1)
  1. FARYDAK [Suspect]
     Active Substance: PANOBINOSTAT
     Indication: PRODUCT USED FOR UNKNOWN INDICATION
     Dosage: 20 MG, (TAKE 1 CAP BY MOUTH 3 TIMES WEEKLY FOR 2 WEEKS ON THEN 1 WEEK OFF. REPEAT EVERY 21 DAYS)
     Route: 048
     Dates: start: 20150806, end: 20150808

REACTIONS (1)
  - Death [Fatal]

NARRATIVE: CASE EVENT DATE: 20150811
